FAERS Safety Report 8711182 (Version 2)
Quarter: 2012Q4

REPORT INFORMATION
  Report Type: 
  Country: US (occurrence: US)
  Receive Date: 20120807
  Receipt Date: 20120906
  Transmission Date: 20130627
  Serious: No
  Sender: FDA-Public Use
  Company Number: US-009507513-1208USA000751

PATIENT

DRUGS (7)
  1. OMEPRAZOLE AND SODIUM BICARBONATE [Suspect]
     Indication: DYSPEPSIA
     Dosage: 20 mg, qd
     Route: 048
     Dates: start: 201201, end: 201203
  2. OMEPRAZOLE AND SODIUM BICARBONATE [Suspect]
     Dosage: UNK
  3. INDERAL [Concomitant]
     Indication: SUPRAVENTRICULAR TACHYCARDIA
     Dosage: UNK, Unknown
  4. INDERAL [Concomitant]
     Indication: ATRIAL TACHYCARDIA
  5. FLECAINIDE ACETATE [Concomitant]
     Indication: SUPRAVENTRICULAR TACHYCARDIA
     Dosage: UNK, Unknown
  6. FLECAINIDE ACETATE [Concomitant]
     Indication: ATRIAL TACHYCARDIA
  7. HYDROCHLOROTHIAZIDE [Concomitant]
     Indication: MENIERE^S DISEASE
     Dosage: UNK, Unknown

REACTIONS (2)
  - Vision blurred [Recovered/Resolved]
  - Feeling abnormal [Recovered/Resolved]
